FAERS Safety Report 4331494-8 (Version None)
Quarter: 2004Q1

REPORT INFORMATION
  Report Type: 
  Country: None (occurrence: None)
  Receive Date: 20040329
  Receipt Date: 20040322
  Transmission Date: 20041129
  Serious: Yes (Hospitalization)
  Sender: FDA-Public Use
  Company Number: US070227

PATIENT
  Age: 84 Year
  Sex: Male
  Weight: 58.1 kg

DRUGS (1)
  1. EPOGEN [Suspect]
     Indication: ANAEMIA
     Dosage: 1 IN 1 WEEKS
     Dates: start: 20030501

REACTIONS (1)
  - MYOCARDIAL INFARCTION [None]
